FAERS Safety Report 5901959-3 (Version None)
Quarter: 2008Q3

REPORT INFORMATION
  Report Type: 
  Country: None (occurrence: None)
  Receive Date: 20080925
  Receipt Date: 20080921
  Transmission Date: 20090109
  Serious: Yes (Other)
  Sender: FDA-Public Use
  Company Number: 2007SP018422

PATIENT
  Age: 49 Year
  Sex: Female
  Weight: 74.8435 kg

DRUGS (3)
  1. PEG-INTRON [Suspect]
     Indication: HEPATITIS C
     Dosage: 120 MCG;QW;SC
     Route: 058
     Dates: start: 20070807, end: 20080710
  2. REBETOL [Suspect]
     Indication: HEPATITIS C
     Dosage: 1000 MG;QD;PO
     Route: 048
     Dates: start: 20070807, end: 20080710
  3. LAXATIVES [Concomitant]

REACTIONS (29)
  - ABDOMINAL DISTENSION [None]
  - ALOPECIA [None]
  - ANOREXIA [None]
  - ASTHENIA [None]
  - CONSTIPATION [None]
  - DEHYDRATION [None]
  - DEPRESSION [None]
  - DRUG INEFFECTIVE [None]
  - FALL [None]
  - FATIGUE [None]
  - FEAR [None]
  - GAIT DISTURBANCE [None]
  - HAEMATOCHEZIA [None]
  - HEADACHE [None]
  - HEART RATE INCREASED [None]
  - HYPOAESTHESIA [None]
  - INSOMNIA [None]
  - LACRIMATION INCREASED [None]
  - MEMORY IMPAIRMENT [None]
  - NAUSEA [None]
  - PAIN IN EXTREMITY [None]
  - PARAESTHESIA [None]
  - PERIPHERAL COLDNESS [None]
  - PYREXIA [None]
  - STOMACH DISCOMFORT [None]
  - SUICIDAL IDEATION [None]
  - VISUAL IMPAIRMENT [None]
  - VOMITING [None]
  - WHITE BLOOD CELL COUNT DECREASED [None]
